FAERS Safety Report 17130173 (Version 1)
Quarter: 2019Q4

REPORT INFORMATION
  Report Type: Spontaneous
  Country: RO (occurrence: RO)
  Receive Date: 20191209
  Receipt Date: 20191209
  Transmission Date: 20200122
  Serious: Yes (Death, Other)
  Sender: FDA-Public Use
  Company Number: RO-PFIZER INC-2019526130

PATIENT

DRUGS (1)
  1. IBRANCE [Suspect]
     Active Substance: PALBOCICLIB
     Dosage: UNK (124 UNITS AND FREQUENCY UNSPECIFIED)

REACTIONS (4)
  - Thrombocytopenia [Unknown]
  - Acute hepatic failure [Unknown]
  - Death [Fatal]
  - Neoplasm progression [Unknown]
